FAERS Safety Report 9736029 (Version 1)
Quarter: 2013Q4

REPORT INFORMATION
  Report Type: Spontaneous
  Country: US (occurrence: US)
  Receive Date: 20131206
  Receipt Date: 20131206
  Transmission Date: 20140711
  Serious: No
  Sender: FDA-Public Use
  Company Number: US-PFIZER INC-2013349038

PATIENT
  Age: 23 Year
  Sex: Male
  Weight: 109 kg

DRUGS (2)
  1. EFFEXOR [Suspect]
     Indication: DEPRESSION
     Dosage: 150 MG, 2X/DAY
     Route: 048
     Dates: start: 2009
  2. REMERON [Concomitant]
     Dosage: 30 MG, 1X/DAY

REACTIONS (2)
  - Protein C increased [Unknown]
  - Drug screen positive [Unknown]
